FAERS Safety Report 4300000-6 (Version None)
Quarter: 2004Q1

REPORT INFORMATION
  Report Type: 
  Country: None (occurrence: None)
  Receive Date: 20040219
  Receipt Date: 20040219
  Transmission Date: 20041129
  Serious: Yes (Hospitalization)
  Sender: FDA-Public Use
  Company Number: None

PATIENT
  Age: 65 Year
  Sex: Male
  Weight: 68.0396 kg

DRUGS (6)
  1. LISINOPRIL [Suspect]
     Dosage: 1 PO QD
     Route: 048
  2. WARFARIN SODIUM [Suspect]
     Dosage: 1 PO QD
     Route: 048
  3. DIAZEPAM [Concomitant]
  4. K-DHOS [Concomitant]
  5. METOPROLOL [Concomitant]
  6. SIMVASTATIN [Concomitant]

REACTIONS (2)
  - COUGH [None]
  - SPLENIC HAEMORRHAGE [None]
